FAERS Safety Report 17953599 (Version 7)
Quarter: 2025Q3

REPORT INFORMATION
  Report Type: Report from Study
  Country: EU (occurrence: EU)
  Receive Date: 20200628
  Receipt Date: 20250909
  Transmission Date: 20251021
  Serious: Yes (Hospitalization, Other)
  Sender: PFIZER
  Company Number: EU-INCYTE CORPORATION-2020IN005307

PATIENT
  Age: 26 Year
  Sex: Male
  Weight: 71 kg

DRUGS (16)
  1. DIFLUCAN [Interacting]
     Active Substance: FLUCONAZOLE
     Dosage: 200 MILLIGRAM, QD
     Route: 065
     Dates: end: 20200120
  2. ICLUSIG [Interacting]
     Active Substance: PONATINIB HYDROCHLORIDE
     Indication: Chronic myeloid leukaemia
     Dosage: 45 MILLIGRAM, QD
     Route: 048
     Dates: start: 20200110, end: 20200119
  3. ICLUSIG [Interacting]
     Active Substance: PONATINIB HYDROCHLORIDE
     Dosage: 15 MILLIGRAM, QD
     Route: 048
     Dates: start: 20200120
  4. FOLIC ACID [Concomitant]
     Active Substance: FOLIC ACID
     Dosage: 4 MILLIGRAM, QD
     Route: 065
  5. NEORAL [Concomitant]
     Active Substance: CYCLOSPORINE
     Dosage: 50 MILLIGRAM, BID
     Route: 065
     Dates: end: 202001
  6. NEORAL [Concomitant]
     Active Substance: CYCLOSPORINE
     Dosage: 75 MILLIGRAM, BID
     Route: 065
     Dates: start: 20200120, end: 202001
  7. NEORAL [Concomitant]
     Active Substance: CYCLOSPORINE
     Route: 065
     Dates: start: 20200131, end: 20200219
  8. PERIO AID [CHLORHEXIDINE GLUCONATE] [Concomitant]
     Dosage: BID
     Route: 065
  9. ZOLPIDEM TARTRATE [Concomitant]
     Active Substance: ZOLPIDEM TARTRATE
     Dosage: 10 MILLIGRAM, QD
     Route: 065
  10. BILASTINE [Concomitant]
     Active Substance: BILASTINE
     Dosage: 20 MILLIGRAM, BID (880 MG CUMULATIVE DOSE TO FIRST REACTION)
     Route: 065
     Dates: start: 20200120, end: 20200210
  11. MOVICOL [Concomitant]
     Active Substance: POLYETHYLENE GLYCOL 3350\POTASSIUM CHLORIDE\SODIUM BICARBONATE\SODIUM CHLORIDE
     Route: 065
  12. DEXPANTHENOL [Concomitant]
     Active Substance: DEXPANTHENOL
     Dosage: 20 MILLIGRAM, QD
     Route: 065
  13. ALIZAPRIDE [Concomitant]
     Active Substance: ALIZAPRIDE
     Dosage: 50 MILLIGRAM, TID
     Route: 065
     Dates: start: 20200120, end: 202001
  14. ALIZAPRIDE [Concomitant]
     Active Substance: ALIZAPRIDE
     Dosage: 50 MILLIGRAM, QID
     Route: 065
     Dates: start: 20200129
  15. IMODIUM [Concomitant]
     Active Substance: LOPERAMIDE HYDROCHLORIDE
     Route: 065
     Dates: start: 20200210
  16. SULFAMETHOXAZOLE\TRIMETHOPRIM [Concomitant]
     Active Substance: SULFAMETHOXAZOLE\TRIMETHOPRIM
     Route: 065

REACTIONS (7)
  - Hepatic function abnormal [Recovered/Resolved]
  - Rash [Recovered/Resolved]
  - Pyrexia [Recovered/Resolved]
  - Diarrhoea [Recovered/Resolved]
  - Vomiting [Recovered/Resolved]
  - Drug interaction [Unknown]
  - Hepatitis [Recovered/Resolved]

NARRATIVE: CASE EVENT DATE: 20200116
